FAERS Safety Report 6258723-8 (Version None)
Quarter: 2009Q3

REPORT INFORMATION
  Report Type: 
  Country: None (occurrence: None)
  Receive Date: 20090707
  Receipt Date: 20090626
  Transmission Date: 20100115
  Serious: Yes (Other)
  Sender: FDA-Public Use
  Company Number: B0565449A

PATIENT
  Sex: Female

DRUGS (1)
  1. AVAMYS [Suspect]
     Dosage: 110MCG PER DAY
     Route: 045

REACTIONS (3)
  - HYPERTENSION [None]
  - NERVOUSNESS [None]
  - OROPHARYNGEAL PAIN [None]
